FAERS Safety Report 5341097-4 (Version None)
Quarter: 2007Q2

REPORT INFORMATION
  Report Type: 
  Country: None (occurrence: None)
  Receive Date: 20070530
  Receipt Date: 20070514
  Transmission Date: 20071010
  Serious: Yes (Death, Other)
  Sender: FDA-Public Use
  Company Number: 2007US001100

PATIENT
  Age: 63 Year
  Sex: Female
  Weight: 88.9 kg

DRUGS (35)
  1. TACROLIMUS [Suspect]
     Indication: PROPHYLAXIS AGAINST TRANSPLANT REJECTION
     Dosage: 0.5, BID, ORAL
     Route: 048
     Dates: start: 20060324, end: 20070313
  2. DILTIAZEM HCL [Concomitant]
  3. POTASSIUM CHLORIDE [Concomitant]
  4. ESOMEPRAZOLE (ESOMEPRAZOLE) [Concomitant]
  5. INSULIN ASPART (INSULIN ASPART) [Concomitant]
  6. HYDROCODONE W/ACETAMINOPHEN (HYDROCODONE BITARTRATE) [Concomitant]
  7. FLEET ENEMA (SODIUM PHOSPHATE DIBASIC) [Concomitant]
  8. PROMETHAZINE [Concomitant]
  9. MORPHINE SULFATE [Concomitant]
  10. ARTIFICIAL TEARS (HYPROMELLOSE) [Concomitant]
  11. NEUPOGEN [Concomitant]
  12. DIPHENHYDRAMINE HCL [Concomitant]
  13. ONDANSETRON HCL [Concomitant]
  14. METOCLOPRAMIDE [Concomitant]
  15. NEUTRA-PHOS (SODIUM PHOSPHATE DIBASIC, POTASSIUM PHOSPHATE MONOBASIC, [Concomitant]
  16. PIPERACILLIN SODIUM W/TAZOBACTAM (PIPERACILLIN SODIUM, TAZOBACTAM) [Concomitant]
  17. ACETAMINOPHEN W/OXYCODONE (OXYCODONE HYDROCHLORIDE) [Concomitant]
  18. NALOXONE [Concomitant]
  19. PROPOXYPHENE HCL AND ACETAMINOPHEN [Concomitant]
  20. COLONIC LAVAGE (SODIUM BICARBONATE, POTASSIUM CHLORIDE, SODIUM SULFATE [Concomitant]
  21. SOLUTIONS FOR PARENTERAL NUTRITION [Concomitant]
  22. HUMULIN REGULAR (INSULIN HUMAN) [Concomitant]
  23. INSULIN GLARGINE (INSULIN GLARGINE) [Concomitant]
  24. ETOPOSIDE [Concomitant]
  25. PREDNISONE TAB [Concomitant]
  26. CLARITHROMYCIN (CLARITHROMYCIN) TABLET [Concomitant]
  27. VALCYTE (VALGANCICLOVIR HYDROCHLORIDE) TABLET [Concomitant]
  28. ARANESP [Concomitant]
  29. LASIX (FUROSEMIDE SODIUM) TABLET [Concomitant]
  30. MUCOMYST (ACETYLCYSTEINE SODIUM) SOLUTION [Concomitant]
  31. ZOFRAN (ONDANSETRON HYDROCHLORIDE) TABLET [Concomitant]
  32. PENTAMIDINE ISETHIONATE (PENTAMIDINE ISETHIONATE) INJECTION [Concomitant]
  33. ALBUTEROL SULFATE [Concomitant]
  34. ALLEGRA (FEXOFENADINE HYDROCHLORIDE) TABLET [Concomitant]
  35. POSACONAZOLE [Concomitant]

REACTIONS (19)
  - ASPERGILLOSIS [None]
  - CANDIDIASIS [None]
  - DIABETES MELLITUS INADEQUATE CONTROL [None]
  - DIZZINESS [None]
  - ENTEROCOCCAL INFECTION [None]
  - HAEMOPTYSIS [None]
  - HEADACHE [None]
  - HEPATOMEGALY [None]
  - METASTASES TO LIVER [None]
  - MUCORMYCOSIS [None]
  - NAUSEA [None]
  - PNEUMONIA CYTOMEGALOVIRAL [None]
  - RENAL FAILURE ACUTE [None]
  - SINUS DISORDER [None]
  - SINUSITIS FUNGAL [None]
  - SMALL CELL CARCINOMA [None]
  - SPUTUM CULTURE POSITIVE [None]
  - STAPHYLOCOCCAL INFECTION [None]
  - STREPTOCOCCAL INFECTION [None]
